FAERS Safety Report 7933889-X (Version None)
Quarter: 2011Q4

REPORT INFORMATION
  Report Type: 
  Country: None (occurrence: None)
  Receive Date: 20111122
  Receipt Date: 20111114
  Transmission Date: 20120403
  Serious: Yes (Death, Other)
  Sender: FDA-Public Use
  Company Number: US-PURDUE-USA-2011-0077871

PATIENT
  Age: 18 Year
  Sex: Male

DRUGS (3)
  1. XANAX [Suspect]
     Indication: DRUG ABUSE
  2. METHADONE HCL [Suspect]
     Indication: DRUG ABUSE
  3. OXYCODONE HCL [Suspect]
     Indication: DRUG ABUSE

REACTIONS (3)
  - DRUG ABUSE [None]
  - DRUG DEPENDENCE [None]
  - DEATH [None]
